FAERS Safety Report 14362126 (Version 1)
Quarter: 2018Q1

REPORT INFORMATION
  Report Type: Report from Study
  Country: DE (occurrence: DE)
  Receive Date: 20180108
  Receipt Date: 20180108
  Transmission Date: 20180509
  Serious: Yes (Hospitalization, Other)
  Sender: FDA-Public Use
  Company Number: DE-ORION CORPORATION ORION PHARMA-TREX2018-0042

PATIENT
  Age: 68 Year
  Sex: Male

DRUGS (4)
  1. METHOTREXATE (TRADE NAME UNKNOWN) [Suspect]
     Active Substance: METHOTREXATE
     Route: 048
     Dates: start: 200905
  2. ABATACEPT [Suspect]
     Active Substance: ABATACEPT
     Indication: RHEUMATOID ARTHRITIS
     Route: 058
     Dates: start: 201204
  3. AMLODIPINE [Concomitant]
     Active Substance: AMLODIPINE BESYLATE
     Route: 065
     Dates: start: 201205
  4. PREDNISOLONE. [Concomitant]
     Active Substance: PREDNISOLONE
     Route: 065
     Dates: start: 200905

REACTIONS (7)
  - Sciatica [Not Recovered/Not Resolved]
  - Vertebral foraminal stenosis [Recovered/Resolved]
  - Hypertension [Unknown]
  - Pulmonary fibrosis [Unknown]
  - Spinal operation [Recovered/Resolved]
  - Peripheral arterial occlusive disease [Recovered/Resolved]
  - Herpes zoster [Recovered/Resolved]

NARRATIVE: CASE EVENT DATE: 20130121
